FAERS Safety Report 6666247-9 (Version None)
Quarter: 2010Q2

REPORT INFORMATION
  Report Type: 
  Country: None (occurrence: None)
  Receive Date: 20100402
  Receipt Date: 20100322
  Transmission Date: 20101027
  Serious: Yes (Hospitalization, Other)
  Sender: FDA-Public Use
  Company Number: US-ELI_LILLY_AND_COMPANY-US200901000466

PATIENT
  Sex: Female

DRUGS (8)
  1. FORTEO [Suspect]
     Indication: OSTEOPOROSIS
     Dosage: 20 UG, DAILY (1/D)
     Dates: start: 20050101, end: 20060313
  2. FORTEO [Suspect]
     Dosage: 20 UG, DAILY (1/D)
     Dates: start: 20081124
  3. FORTEO [Suspect]
     Dosage: 20 UG, DAILY (1/D)
  4. MIACALCIN [Concomitant]
     Dosage: UNK, UNK
     Dates: start: 20060315, end: 20081101
  5. POTASSIUM [Concomitant]
  6. DETROL /USA/ [Concomitant]
  7. FAMOTIDINE [Concomitant]
  8. FLAXSEED OIL [Concomitant]

REACTIONS (13)
  - BLADDER PROLAPSE [None]
  - DEVICE MALFUNCTION [None]
  - FALL [None]
  - HIP FRACTURE [None]
  - INTENTIONAL DRUG MISUSE [None]
  - LIMB INJURY [None]
  - MEDICATION ERROR [None]
  - MULTIPLE FRACTURES [None]
  - PELVIC FRACTURE [None]
  - PNEUMONIA [None]
  - SCIATICA [None]
  - SPINAL FRACTURE [None]
  - SWELLING [None]
